FAERS Safety Report 22123699 (Version 3)
Quarter: 2023Q2

REPORT INFORMATION
  Report Type: Spontaneous
  Country: FR (occurrence: FR)
  Receive Date: 20230322
  Receipt Date: 20230509
  Transmission Date: 20230721
  Serious: Yes (Hospitalization, Other)
  Sender: FDA-Public Use
  Company Number: FR-SANOFI-01514393

PATIENT
  Age: 51 Year
  Sex: Female
  Weight: 92 kg

DRUGS (4)
  1. AUBAGIO [Suspect]
     Active Substance: TERIFLUNOMIDE
     Indication: Multiple sclerosis
     Dosage: UNK
     Dates: start: 201904
  2. AUBAGIO [Suspect]
     Active Substance: TERIFLUNOMIDE
     Dosage: UNK UNK, QD
     Route: 048
     Dates: start: 201905
  3. PROPAFENONE [Concomitant]
     Active Substance: PROPAFENONE
     Dosage: UNK
  4. LEVOTHYROXINE SODIUM [Concomitant]
     Active Substance: LEVOTHYROXINE SODIUM
     Indication: Thyroidectomy
     Dosage: UNK, QD
     Route: 048
     Dates: start: 2006

REACTIONS (20)
  - Drug hypersensitivity [Unknown]
  - Hyperkalaemia [Recovered/Resolved]
  - Tremor [Recovering/Resolving]
  - Insomnia [Unknown]
  - Feeling cold [Unknown]
  - Dyspnoea [Unknown]
  - Palpitations [Recovering/Resolving]
  - Nausea [Unknown]
  - Hyperhidrosis [Recovering/Resolving]
  - Fatigue [Recovered/Resolved]
  - Malaise [Unknown]
  - Restlessness [Unknown]
  - Impaired quality of life [Unknown]
  - Stress [Unknown]
  - Blood chloride increased [Unknown]
  - Red blood cell count increased [Unknown]
  - Haemoglobin increased [Unknown]
  - Haematocrit increased [Unknown]
  - Mean cell haemoglobin concentration decreased [Unknown]
  - Monocyte count increased [Unknown]

NARRATIVE: CASE EVENT DATE: 20221101
